FAERS Safety Report 7893641-0 (Version None)
Quarter: 2011Q4

REPORT INFORMATION
  Report Type: 
  Country: None (occurrence: None)
  Receive Date: 20111104
  Receipt Date: 20111021
  Transmission Date: 20120403
  Serious: Yes (Other)
  Sender: FDA-Public Use
  Company Number: US-GLAXOSMITHKLINE-B0756100A

PATIENT
  Sex: Female

DRUGS (3)
  1. LUPRON [Concomitant]
  2. AVANDIA [Suspect]
     Indication: TYPE 2 DIABETES MELLITUS
     Dosage: 4MG TWICE PER DAY
     Route: 048
     Dates: start: 20010101
  3. GLUCOPHAGE [Concomitant]

REACTIONS (7)
  - DEPRESSION [None]
  - DYSPNOEA [None]
  - OEDEMA [None]
  - PAIN [None]
  - HYPOGLYCAEMIA [None]
  - ANAEMIA [None]
  - LUNG DISORDER [None]
